FAERS Safety Report 4390696-5 (Version None)
Quarter: 2004Q2

REPORT INFORMATION
  Report Type: 
  Country: None (occurrence: None)
  Receive Date: 20040630
  Receipt Date: 20040617
  Transmission Date: 20050107
  Serious: Yes (Death)
  Sender: FDA-Public Use
  Company Number: 163-20785-04060133

PATIENT
  Age: 65 Year
  Sex: Male

DRUGS (2)
  1. THALOMID [Suspect]
     Indication: MULTIPLE MYELOMA
     Dosage: 50 MG, DAILY, ORAL
     Route: 048
     Dates: start: 20040317, end: 20040101
  2. DECADRON [Suspect]
     Dosage: 4 DAYS ON, 4 DAYS OFF
     Dates: start: 20040101

REACTIONS (2)
  - CARDIAC DISORDER [None]
  - STRESS SYMPTOMS [None]
